FAERS Safety Report 5676387-9 (Version None)
Quarter: 2008Q1

REPORT INFORMATION
  Report Type: 
  Country: None (occurrence: None)
  Receive Date: 20080321
  Receipt Date: 20080312
  Transmission Date: 20080703
  Serious: Yes (Other)
  Sender: FDA-Public Use
  Company Number: US-PFIZER INC-2008023416

PATIENT
  Sex: Female
  Weight: 90.909 kg

DRUGS (2)
  1. CHANTIX [Suspect]
     Indication: SMOKING CESSATION THERAPY
     Dates: start: 20080302, end: 20080305
  2. NORCO [Concomitant]
     Indication: PAIN

REACTIONS (4)
  - AGITATION [None]
  - FEAR [None]
  - INSOMNIA [None]
  - PARANOIA [None]
